FAERS Safety Report 11114672 (Version 1)
Quarter: 2015Q2

REPORT INFORMATION
  Report Type: Spontaneous
  Country: TR (occurrence: None)
  Receive Date: 20150512
  Receipt Date: 20150512
  Transmission Date: 20150821
  Serious: Yes (Hospitalization)
  Sender: FDA-Public Use
  Company Number: 2015HINLIT0409

PATIENT
  Age: 74 Year
  Sex: Male

DRUGS (6)
  1. CARVEDILOL (CARVEDILOL) [Concomitant]
     Active Substance: CARVEDILOL
  2. SPIROLOLACTINE/HYDROCHLOROTHIAZIDE (SPIROLOCTONE/HYDROCHLOROTHIAZIDE) [Concomitant]
  3. LEVETIRACTAM [Suspect]
     Active Substance: LEVETIRACETAM
     Indication: EPILEPSY
  4. SODIUM VALPROATE (SODIUM VALPROATE) [Concomitant]
     Active Substance: VALPROATE SODIUM
  5. FUROSEMIDE (FUROSEMIDE) [Concomitant]
     Active Substance: FUROSEMIDE
  6. TRANDOLAPRIL (TRANDOLAPRIL) [Concomitant]

REACTIONS (2)
  - Hyponatraemia [None]
  - Cardiac failure [None]
